FAERS Safety Report 10966744 (Version 1)
Quarter: 2015Q1

REPORT INFORMATION
  Report Type: Report from Study
  Country: JP (occurrence: JP)
  Receive Date: 20150330
  Receipt Date: 20150330
  Transmission Date: 20150721
  Serious: Yes (Hospitalization, Other)
  Sender: FDA-Public Use
  Company Number: JP-SHIRE-JP201502575

PATIENT
  Age: 68 Year
  Sex: Female

DRUGS (26)
  1. RENAGEL [Concomitant]
     Active Substance: SEVELAMER HYDROCHLORIDE
     Dosage: 4500 MG, UNKNOWN
     Route: 048
     Dates: start: 20081226, end: 20110603
  2. OXAROL [Concomitant]
     Active Substance: MAXACALCITOL
     Indication: PRODUCT USED FOR UNKNOWN INDICATION
     Dosage: 15 ?G, 1X/WEEK
     Route: 042
     Dates: start: 20110923
  3. OXAROL [Concomitant]
     Active Substance: MAXACALCITOL
     Dosage: UNK UNK, 1X/WEEK
     Route: 042
     Dates: start: 20081226
  4. TANATRIL [Concomitant]
     Active Substance: IMIDAPRIL
     Indication: PRODUCT USED FOR UNKNOWN INDICATION
     Dosage: 5 MG, UNKNOWN
     Route: 048
  5. ALPROSTADIL. [Concomitant]
     Active Substance: ALPROSTADIL
     Dosage: 15 ?G, 1X/WEEK (ONLY IN THE DAYS OF DIALYSIS)
     Route: 042
  6. 405 (LANTHANUM CARBONATE) [Suspect]
     Active Substance: LANTHANUM CARBONATE
     Indication: HYPERPHOSPHATAEMIA
     Dosage: 750 MG/DAY
     Route: 048
     Dates: start: 20100212, end: 20120605
  7. REGPARA [Concomitant]
     Active Substance: CINACALCET HYDROCHLORIDE
     Indication: HYPERPARATHYROIDISM SECONDARY
     Dosage: 25 MG, UNKNOWN
     Route: 048
     Dates: end: 20140613
  8. ARTIST [Concomitant]
     Active Substance: CARVEDILOL
     Indication: PRODUCT USED FOR UNKNOWN INDICATION
     Dosage: 5 MG, UNKNOWN
     Route: 048
  9. KAYEXALATE [Concomitant]
     Active Substance: SODIUM POLYSTYRENE SULFONATE
     Indication: PRODUCT USED FOR UNKNOWN INDICATION
     Dosage: 5 G, UNKNOWN
     Route: 048
  10. ROCALTROL [Concomitant]
     Active Substance: CALCITRIOL
     Indication: PRODUCT USED FOR UNKNOWN INDICATION
     Dosage: 0.25 ?G, UNKNOWN
     Route: 048
     Dates: start: 20130201
  11. ROCALTROL [Concomitant]
     Active Substance: CALCITRIOL
     Dosage: 0.75 UNK, UNK
     Route: 048
     Dates: start: 20120914, end: 20130130
  12. 405 (LANTHANUM CARBONATE) [Suspect]
     Active Substance: LANTHANUM CARBONATE
     Indication: HYPERPHOSPHATAEMIA
     Dosage: 750 MG/DAY, UNKNOWN
     Route: 048
     Dates: start: 20120706, end: 20140703
  13. WARFARIN                           /00014803/ [Suspect]
     Active Substance: WARFARIN
     Indication: HYPERPHOSPHATAEMIA
     Dosage: 1.5 MG/DAY, UNKNOWN
     Route: 048
  14. REGPARA [Concomitant]
     Active Substance: CINACALCET HYDROCHLORIDE
     Dosage: 50 MG, UNKNOWN
     Route: 048
     Dates: start: 20091002
  15. SIGMART [Concomitant]
     Active Substance: NICORANDIL
     Indication: PRODUCT USED FOR UNKNOWN INDICATION
     Dosage: 15 MG, UNKNOWN
     Route: 048
  16. BONALON [Concomitant]
     Active Substance: ALENDRONATE SODIUM
     Indication: OFF LABEL USE
     Dosage: 15 MG, 1X/WEEK (ONLY AFTER DIALYSOS)
     Route: 048
  17. ALPROSTADIL. [Concomitant]
     Active Substance: ALPROSTADIL
     Indication: OFF LABEL USE
     Dosage: 5 ?G, 1X/WEEK(ONLY ON DIALYSIS DAYS)
     Route: 042
     Dates: start: 20130125
  18. VITACIMIN [Concomitant]
     Indication: PRODUCT USED FOR UNKNOWN INDICATION
     Dosage: 500 MG, 1X/WEEK (ONLY ON MONDAY)
     Route: 042
  19. ROCALTROL [Concomitant]
     Active Substance: CALCITRIOL
     Dosage: 0.25 ?G, UNKNOWN
     Route: 048
     Dates: start: 20130201
  20. OMEPRAL                            /00661201/ [Concomitant]
     Active Substance: OMEPRAZOLE
     Indication: PRODUCT USED FOR UNKNOWN INDICATION
     Dosage: 10 MG, UNKNOWN
     Route: 048
  21. RENAGEL [Concomitant]
     Active Substance: SEVELAMER HYDROCHLORIDE
     Indication: HYPERPHOSPHATAEMIA
     Dosage: 4500 MG, UNKNOWN
     Route: 048
     Dates: start: 20110713
  22. REGPARA [Concomitant]
     Active Substance: CINACALCET HYDROCHLORIDE
     Dosage: 50 MG, UNKNOWN
     Route: 048
     Dates: start: 20110408
  23. BAYASPIRIN [Concomitant]
     Active Substance: ASPIRIN
     Indication: PRODUCT USED FOR UNKNOWN INDICATION
     Dosage: 100 MG, UNKNOWN
     Route: 048
  24. FINIBAX [Concomitant]
     Active Substance: DORIPENEM MONOHYDRATE
     Indication: PRODUCT USED FOR UNKNOWN INDICATION
     Dosage: 0.25 ?G, UNKNOWN
     Route: 042
     Dates: start: 20140303, end: 20140313
  25. JUSO [Concomitant]
     Indication: PRODUCT USED FOR UNKNOWN INDICATION
     Dosage: 3000 MG, UNKNOWN
     Route: 048
  26. ROCALTROL [Concomitant]
     Active Substance: CALCITRIOL
     Dosage: 0.25 UNK, UNK
     Route: 048
     Dates: start: 20120720, end: 20120913

REACTIONS (4)
  - Blood pressure decreased [Recovered/Resolved]
  - Inflammation [Recovered/Resolved]
  - Upper gastrointestinal haemorrhage [Unknown]
  - Haematochezia [Unknown]

NARRATIVE: CASE EVENT DATE: 20140321
